FAERS Safety Report 10387411 (Version 1)
Quarter: 2014Q3

REPORT INFORMATION
  Report Type: Spontaneous
  Country: US (occurrence: None)
  Receive Date: 20140814
  Receipt Date: 20140814
  Transmission Date: 20150326
  Serious: No
  Sender: FDA-Public Use
  Company Number: None

PATIENT
  Age: 65 Year
  Sex: Female
  Weight: 64.41 kg

DRUGS (1)
  1. RIZATRIPTAN BENZOATE. [Suspect]
     Active Substance: RIZATRIPTAN BENZOATE
     Indication: HEADACHE
     Dosage: 1 PILL EVERY 2 HOURS AS NEEDED TAKEN BY MOUTH
     Route: 048
     Dates: start: 20140805, end: 20140808

REACTIONS (3)
  - Incorrect dose administered [None]
  - Headache [None]
  - Wrong technique in drug usage process [None]

NARRATIVE: CASE EVENT DATE: 20140808
